FAERS Safety Report 23821811 (Version 2)
Quarter: 2024Q3

REPORT INFORMATION
  Report Type: Report from Study
  Country: US (occurrence: US)
  Receive Date: 20240506
  Receipt Date: 20240805
  Transmission Date: 20241017
  Serious: Yes (Other)
  Sender: ABBVIE
  Company Number: US-ABBVIE-5742347

PATIENT
  Sex: Male

DRUGS (1)
  1. SKYRIZI [Suspect]
     Active Substance: RISANKIZUMAB-RZAA
     Indication: Crohn^s disease
     Route: 058
     Dates: start: 20230727

REACTIONS (6)
  - Bowel movement irregularity [Recovering/Resolving]
  - Cataract [Unknown]
  - Anaemia [Unknown]
  - Weight decreased [Unknown]
  - Drug ineffective [Unknown]
  - Gastrointestinal disorder [Unknown]
